FAERS Safety Report 6693062-2 (Version None)
Quarter: 2010Q2

REPORT INFORMATION
  Report Type: 
  Country: None (occurrence: None)
  Receive Date: 20100422
  Receipt Date: 20100408
  Transmission Date: 20101027
  Serious: Yes (Hospitalization)
  Sender: FDA-Public Use
  Company Number: DE-MYLANLABS-2010S1000060

PATIENT
  Age: 70 Year
  Sex: Female
  Weight: 82 kg

DRUGS (11)
  1. OMEPRAZOLE [Suspect]
     Indication: PROPHYLAXIS AGAINST GASTROINTESTINAL ULCER
     Route: 048
  2. UNACID PD [Interacting]
     Indication: ANTIBIOTIC PROPHYLAXIS
     Route: 048
     Dates: start: 20090825, end: 20090827
  3. CLINDA-SAAR /00166002/ [Interacting]
     Indication: PROPHYLAXIS
     Route: 048
     Dates: start: 20090828, end: 20090907
  4. REWODINA [Interacting]
     Indication: BONE PAIN
     Route: 048
     Dates: end: 20091019
  5. MANINIL [Concomitant]
     Indication: TYPE 2 DIABETES MELLITUS
     Route: 048
     Dates: end: 20091014
  6. FELODIPINE [Concomitant]
     Indication: HYPERTENSION
     Route: 048
  7. TORSEMIDE [Concomitant]
     Indication: HYPERTENSION
     Route: 048
  8. DOXAGAMMA [Concomitant]
     Indication: HYPERTENSION
     Route: 048
  9. SIMVASTATIN [Concomitant]
     Indication: HYPERLIPIDAEMIA
     Route: 048
  10. ALLOPURINOL [Concomitant]
     Indication: DRUG USE FOR UNKNOWN INDICATION
     Route: 048
  11. DIOVAN [Concomitant]
     Indication: HYPERTENSION
     Route: 048

REACTIONS (2)
  - DRUG INTERACTION [None]
  - PSEUDOMEMBRANOUS COLITIS [None]
